FAERS Safety Report 10152323 (Version 4)
Quarter: 2014Q2

REPORT INFORMATION
  Report Type: Spontaneous
  Country: US (occurrence: US)
  Receive Date: 20140505
  Receipt Date: 20140613
  Transmission Date: 20141212
  Serious: Yes (Death, Hospitalization, Other)
  Sender: FDA-Public Use
  Company Number: US-BAXTER-2014BAX020780

PATIENT
  Sex: Male

DRUGS (3)
  1. DIANEAL LOW CALCIUM [Suspect]
     Indication: PERITONEAL DIALYSIS
     Route: 033
     Dates: end: 20140510
  2. DIANEAL LOW CALCIUM [Suspect]
     Indication: PERITONEAL DIALYSIS
     Route: 033
     Dates: start: 2012, end: 20140510
  3. EXTRANEAL [Suspect]
     Indication: PERITONEAL DIALYSIS
     Route: 033
     Dates: start: 2012, end: 20140510

REACTIONS (8)
  - Myocardial infarction [Fatal]
  - Cardiac arrest [Fatal]
  - Wound [Recovering/Resolving]
  - Localised infection [Recovering/Resolving]
  - Gastric disorder [Unknown]
  - Thrombosis [Unknown]
  - Vomiting [Unknown]
  - Abdominal pain upper [Unknown]
